FAERS Safety Report 4900318-X (Version None)
Quarter: 2006Q1

REPORT INFORMATION
  Report Type: 
  Country: None (occurrence: None)
  Receive Date: 20060203
  Receipt Date: 20060130
  Transmission Date: 20060701
  Serious: Yes (Other)
  Sender: FDA-Public Use
  Company Number: CA-GLAXOSMITHKLINE-A0591793A

PATIENT
  Age: 10 Year
  Sex: Female

DRUGS (3)
  1. FLOVENT [Suspect]
     Indication: DRUG USE FOR UNKNOWN INDICATION
     Dosage: 250MCG TWICE PER DAY
     Route: 055
  2. SINGULAIR [Concomitant]
     Route: 065
  3. REACTINE [Concomitant]
     Route: 065

REACTIONS (4)
  - AGGRESSION [None]
  - DEPRESSION [None]
  - MEMORY IMPAIRMENT [None]
  - PERSONALITY CHANGE [None]
